FAERS Safety Report 9865168 (Version 2)
Quarter: 2014Q1

REPORT INFORMATION
  Report Type: Spontaneous
  Country: US (occurrence: US)
  Receive Date: 20140203
  Receipt Date: 20140203
  Transmission Date: 20141002
  Serious: No
  Sender: FDA-Public Use
  Company Number: US-ALLERGAN-1303794US

PATIENT
  Age: 57 Year
  Sex: Male

DRUGS (4)
  1. RESTASIS [Suspect]
     Indication: DRY EYE
     Dosage: 2 GTT, BID
     Route: 047
  2. NEUPRO PATCH 3MG UCB [Suspect]
     Indication: PARKINSON^S DISEASE
  3. AMANTADINE [Concomitant]
     Indication: PARKINSON^S DISEASE
     Dosage: 100 MG, TID
     Route: 048
     Dates: start: 2008
  4. MIRAPEX [Concomitant]
     Indication: PARKINSON^S DISEASE
     Dosage: 0.5 MG, QID
     Route: 048

REACTIONS (2)
  - Photophobia [Recovered/Resolved]
  - Dry eye [Recovered/Resolved]
